FAERS Safety Report 7291187-4 (Version None)
Quarter: 2011Q1

REPORT INFORMATION
  Report Type: 
  Country: None (occurrence: None)
  Receive Date: 20110214
  Receipt Date: 20110202
  Transmission Date: 20110831
  Serious: Yes (Death)
  Sender: FDA-Public Use
  Company Number: RU-MERCK-1102USA00438

PATIENT
  Age: 23 Year

DRUGS (2)
  1. PRIMAXIN [Concomitant]
     Route: 042
  2. CANCIDAS [Suspect]
     Route: 042

REACTIONS (2)
  - PULMONARY HAEMORRHAGE [None]
  - DRUG INEFFECTIVE [None]
